FAERS Safety Report 12060631 (Version 3)
Quarter: 2016Q4

REPORT INFORMATION
  Report Type: Spontaneous
  Country: US (occurrence: US)
  Receive Date: 20160210
  Receipt Date: 20161028
  Transmission Date: 20170206
  Serious: No
  Sender: FDA-Public Use
  Company Number: US-GLAXOSMITHKLINE-US2016015981

PATIENT
  Sex: Male

DRUGS (9)
  1. ANORO ELLIPTA [Suspect]
     Active Substance: UMECLIDINIUM BROMIDE\VILANTEROL TRIFENATATE
     Dosage: UNK
  2. LISINOPRIL. [Concomitant]
     Active Substance: LISINOPRIL
  3. ANORO ELLIPTA [Suspect]
     Active Substance: UMECLIDINIUM BROMIDE\VILANTEROL TRIFENATATE
     Indication: CHRONIC OBSTRUCTIVE PULMONARY DISEASE
     Dosage: 1 PUFF(S), QD
     Route: 055
     Dates: start: 201512
  4. LEVOTHYROXINE. [Concomitant]
     Active Substance: LEVOTHYROXINE
  5. XARELTO [Concomitant]
     Active Substance: RIVAROXABAN
  6. ATORVASTATIN [Concomitant]
     Active Substance: ATORVASTATIN
  7. CLONAZEPAM. [Concomitant]
     Active Substance: CLONAZEPAM
  8. CARVEDILOL. [Concomitant]
     Active Substance: CARVEDILOL
  9. MELATONIN [Concomitant]
     Active Substance: MELATONIN

REACTIONS (7)
  - Dysgeusia [Not Recovered/Not Resolved]
  - Drug dispensing error [Unknown]
  - Insomnia [Not Recovered/Not Resolved]
  - Circumstance or information capable of leading to medication error [Unknown]
  - Cough [Not Recovered/Not Resolved]
  - Product packaging confusion [Unknown]
  - Product taste abnormal [Unknown]
